FAERS Safety Report 6730244-5 (Version None)
Quarter: 2010Q2

REPORT INFORMATION
  Report Type: 
  Country: None (occurrence: None)
  Receive Date: 20100513
  Receipt Date: 20100504
  Transmission Date: 20101027
  Serious: Yes (Other)
  Sender: FDA-Public Use
  Company Number: DSU-2010-01950

PATIENT
  Sex: Male

DRUGS (1)
  1. WELCHOL [Suspect]
     Indication: HYPERLIPIDAEMIA
     Dosage: 3750 MG, PER ORAL
     Route: 048
     Dates: start: 20050101

REACTIONS (2)
  - GASTROINTESTINAL NEOPLASM [None]
  - METASTASES TO LYMPH NODES [None]
